FAERS Safety Report 12375152 (Version 1)
Quarter: 2016Q2

REPORT INFORMATION
  Report Type: Spontaneous
  Country: US (occurrence: None)
  Receive Date: 20160516
  Receipt Date: 20160516
  Transmission Date: 20160815
  Serious: Yes (Disabling)
  Sender: FDA-Public Use
  Company Number: None

PATIENT
  Age: 54 Year
  Sex: Female
  Weight: 61.24 kg

DRUGS (3)
  1. CIPROFLOXACIN, 500MG COBALT [Suspect]
     Active Substance: CIPROFLOXACIN
     Indication: UPPER RESPIRATORY TRACT INFECTION
     Route: 048
  2. NALTROXIN [Concomitant]
  3. VITAMIN D [Concomitant]
     Active Substance: CHOLECALCIFEROL

REACTIONS (4)
  - Burning sensation [None]
  - Asthenia [None]
  - Tinnitus [None]
  - Paraesthesia [None]
